FAERS Safety Report 19826409 (Version 1)
Quarter: 2021Q3

REPORT INFORMATION
  Report Type: Spontaneous
  Country: US (occurrence: US)
  Receive Date: 20210912
  Receipt Date: 20210912
  Transmission Date: 20211014
  Serious: Yes (Hospitalization)
  Sender: FDA-Public Use
  Company Number: None

PATIENT
  Sex: Male

DRUGS (1)
  1. TRELSTAR [Suspect]
     Active Substance: TRIPTORELIN PAMOATE
     Indication: PROSTATE CANCER
     Dosage: OTHER FREQUENCY:EVERY 84 DAYS;?
     Route: 030
     Dates: start: 20190604

REACTIONS (2)
  - Poisoning [None]
  - Gallbladder disorder [None]
